FAERS Safety Report 10033018 (Version 4)
Quarter: 2014Q3

REPORT INFORMATION
  Report Type: Spontaneous
  Country: IE (occurrence: IE)
  Receive Date: 20140324
  Receipt Date: 20140711
  Transmission Date: 20150326
  Serious: Yes (Hospitalization)
  Sender: FDA-Public Use
  Company Number: US-ASTRAZENECA-2014SE17315

PATIENT
  Age: 164 Day
  Sex: Male

DRUGS (17)
  1. SYNAGIS [Suspect]
     Active Substance: PALIVIZUMAB
     Indication: PREMATURE BABY
     Dosage: 3RD 8/52 AFTER 1ST, 15 MG/KG
     Route: 030
  2. AMOXIL [Concomitant]
     Active Substance: AMOXICILLIN
     Indication: PRODUCT USED FOR UNKNOWN INDICATION
     Route: 048
     Dates: start: 20140420
  3. SYNAGIS [Suspect]
     Active Substance: PALIVIZUMAB
     Indication: PREMATURE BABY
     Dosage: 2ND DOSE 3/52 AFTER FIRST, 15 MG/KG
     Route: 030
  4. GAVISCON [Concomitant]
     Active Substance: ALUMINUM HYDROXIDE\MAGNESIUM CARBONATE
     Indication: PRODUCT USED FOR UNKNOWN INDICATION
  5. AMOXYCILLIN [Concomitant]
     Active Substance: AMOXICILLIN
     Indication: INFECTION
     Route: 048
     Dates: start: 20131101, end: 20131108
  6. PARACETAMOL [Concomitant]
     Active Substance: ACETAMINOPHEN
     Indication: PRODUCT USED FOR UNKNOWN INDICATION
  7. BETNESOL [Concomitant]
     Active Substance: BETAMETHASONE
     Indication: NASAL OBSTRUCTION
     Dosage: 1 (T) DROP TWICE A DAY (BD)
     Route: 045
     Dates: start: 20131125, end: 20131202
  8. BETNESOL [Concomitant]
     Active Substance: BETAMETHASONE
     Indication: UPPER-AIRWAY COUGH SYNDROME
     Dosage: 1 (T) DROP TWICE A DAY (BD)
     Route: 045
     Dates: start: 20140113, end: 20140120
  9. SYNAGIS [Suspect]
     Active Substance: PALIVIZUMAB
     Indication: PREMATURE BABY
     Route: 030
     Dates: start: 20131024
  10. BETNESOL [Concomitant]
     Active Substance: BETAMETHASONE
     Indication: UPPER-AIRWAY COUGH SYNDROME
     Dosage: 1 (T) DROP TWICE A DAY (BD)
     Route: 045
     Dates: start: 20130917, end: 20130924
  11. BETNESOL [Concomitant]
     Active Substance: BETAMETHASONE
     Indication: NASAL OBSTRUCTION
     Dosage: 1 (T) DROP TWICE A DAY (BD)
     Route: 045
     Dates: start: 20130917, end: 20130924
  12. BETNESOL [Concomitant]
     Active Substance: BETAMETHASONE
     Indication: UPPER-AIRWAY COUGH SYNDROME
     Dosage: 1 (T) DROP TWICE A DAY (BD)
     Route: 045
     Dates: start: 20131125, end: 20131202
  13. BETNESOL [Concomitant]
     Active Substance: BETAMETHASONE
     Indication: NASAL OBSTRUCTION
     Dosage: 1 (T) DROP TWICE A DAY (BD)
     Route: 045
     Dates: start: 20140113, end: 20140120
  14. SYNAGIS [Suspect]
     Active Substance: PALIVIZUMAB
     Indication: PREMATURE BABY
     Route: 030
  15. AUGMENTIN DUO [Concomitant]
     Active Substance: AMOXICILLIN\CLAVULANATE POTASSIUM
     Indication: INFECTION
     Route: 048
     Dates: start: 20140212, end: 20140219
  16. OLBAS [Concomitant]
     Indication: PRODUCT USED FOR UNKNOWN INDICATION
  17. DISTACLOR [Concomitant]
     Indication: INFECTION
     Route: 048
     Dates: start: 20131223, end: 20131230

REACTIONS (11)
  - Bronchiolitis [Unknown]
  - Productive cough [Not Recovered/Not Resolved]
  - Pyrexia [Unknown]
  - Urine output decreased [Not Recovered/Not Resolved]
  - Cough [Not Recovered/Not Resolved]
  - Nasopharyngitis [Unknown]
  - Tonsillitis [Unknown]
  - Decreased appetite [Not Recovered/Not Resolved]
  - Oligodipsia [Not Recovered/Not Resolved]
  - Pharyngeal erythema [Unknown]
  - Cough [Not Recovered/Not Resolved]

NARRATIVE: CASE EVENT DATE: 20131101
